FAERS Safety Report 5117104-0 (Version None)
Quarter: 2006Q3

REPORT INFORMATION
  Report Type: 
  Country: None (occurrence: None)
  Receive Date: 20060925
  Receipt Date: 20060814
  Transmission Date: 20061208
  Serious: Yes (Hospitalization)
  Sender: FDA-Public Use
  Company Number: 2006046651

PATIENT
  Age: 54 Year
  Sex: Male

DRUGS (1)
  1. INSPRA [Suspect]
     Indication: CARDIAC FAILURE CHRONIC
     Dosage: (25 MG), ORAL
     Route: 048

REACTIONS (14)
  - ASTHENIA [None]
  - CELLULITIS [None]
  - CHOLECYSTITIS ACUTE [None]
  - COORDINATION ABNORMAL [None]
  - DEHYDRATION [None]
  - DYSKINESIA [None]
  - DYSPNOEA [None]
  - EXERCISE TEST ABNORMAL [None]
  - HYPERHIDROSIS [None]
  - MYALGIA [None]
  - OEDEMA PERIPHERAL [None]
  - TREMOR [None]
  - URINE ODOUR ABNORMAL [None]
  - URINE OUTPUT DECREASED [None]
